FAERS Safety Report 9717027 (Version 1)
Quarter: 2013Q4

REPORT INFORMATION
  Report Type: Spontaneous
  Country: US (occurrence: US)
  Receive Date: 20131127
  Receipt Date: 20131127
  Transmission Date: 20140711
  Serious: No
  Sender: FDA-Public Use
  Company Number: US-GILEAD-2009-0020622

PATIENT
  Sex: Female
  Weight: 28.35 kg

DRUGS (12)
  1. LETAIRIS [Suspect]
     Indication: PULMONARY ARTERIAL HYPERTENSION
     Route: 048
     Dates: start: 20090207
  2. OXYGEN [Concomitant]
  3. DIOVAN [Concomitant]
  4. ATENOLOL [Concomitant]
  5. NIFEDIPINE [Concomitant]
  6. MINOXIDIL [Concomitant]
  7. CATAPRES [Concomitant]
  8. RENAGEL [Concomitant]
  9. SYNTHROID [Concomitant]
  10. PRILOSEC [Concomitant]
  11. NEPHRO-VITE [Concomitant]
  12. COLACE [Concomitant]

REACTIONS (4)
  - Nausea [Unknown]
  - Vomiting [Unknown]
  - Decreased appetite [Unknown]
  - Dyspnoea [Unknown]
